FAERS Safety Report 8862754 (Version 1)
Quarter: 2012Q4

REPORT INFORMATION
  Report Type: 
  Country: US (occurrence: US)
  Receive Date: 20121026
  Receipt Date: 20121026
  Transmission Date: 20130627
  Serious: No
  Sender: FDA-Public Use
  Company Number: US-ALLERGAN-1208456US

PATIENT
  Age: 69 Year
  Sex: Female

DRUGS (1)
  1. ALPHAGAN P [Suspect]
     Indication: GLAUCOMA
     Dosage: 2 Gtt, bid
     Route: 047
     Dates: start: 201206, end: 201206

REACTIONS (9)
  - Eye disorder [Recovering/Resolving]
  - Intraocular pressure increased [Recovering/Resolving]
  - Eye discharge [Recovering/Resolving]
  - Neuropathy peripheral [Recovering/Resolving]
  - Sensation of pressure [Recovering/Resolving]
  - Vision blurred [Recovering/Resolving]
  - Scleral hyperaemia [Recovering/Resolving]
  - Erythema of eyelid [Recovering/Resolving]
  - Instillation site pain [Recovering/Resolving]
